FAERS Safety Report 22592223 (Version 1)
Quarter: 2023Q2

REPORT INFORMATION
  Report Type: Report from Study
  Country: CO (occurrence: CO)
  Receive Date: 20230613
  Receipt Date: 20230613
  Transmission Date: 20230721
  Serious: Yes (Hospitalization, Other)
  Sender: FDA-Public Use
  Company Number: CO-ABBVIE-5285708

PATIENT
  Sex: Female

DRUGS (1)
  1. VENCLEXTA [Suspect]
     Active Substance: VENETOCLAX
     Indication: Acute myeloid leukaemia
     Dosage: 400 MILLIGRAM?FORM STRENGTH: 100 MILLIGRAM?START DATE : 17 MAY 2023
     Route: 048
     Dates: end: 20230529

REACTIONS (2)
  - Pancytopenia [Not Recovered/Not Resolved]
  - Phlebitis [Recovering/Resolving]

NARRATIVE: CASE EVENT DATE: 20230101
